FAERS Safety Report 21918037 (Version 1)
Quarter: 2023Q1

REPORT INFORMATION
  Report Type: Other
  Country: IN (occurrence: None)
  Receive Date: 20230127
  Receipt Date: 20230127
  Transmission Date: 20230417
  Serious: Yes (Other)
  Sender: FDA-Public Use
  Company Number: IN-ROCHE-3269203

PATIENT
  Age: 63 Year
  Sex: Male

DRUGS (1)
  1. ALECENSA [Suspect]
     Active Substance: ALECTINIB HYDROCHLORIDE
     Indication: Lung cancer metastatic
     Route: 048

REACTIONS (2)
  - Lymphadenopathy mediastinal [Unknown]
  - Lymph node palpable [Unknown]

NARRATIVE: CASE EVENT DATE: 20221126
